FAERS Safety Report 7753650-9 (Version None)
Quarter: 2011Q3

REPORT INFORMATION
  Report Type: 
  Country: None (occurrence: None)
  Receive Date: 20110915
  Receipt Date: 20110905
  Transmission Date: 20111222
  Serious: Yes (Death, Life-Threatening)
  Sender: FDA-Public Use
  Company Number: AU-CELGENEUS-008-21880-11090328

PATIENT
  Sex: Female

DRUGS (8)
  1. OXYCODONE HCL [Concomitant]
     Route: 065
  2. REVLIMID [Suspect]
     Indication: MULTIPLE MYELOMA
     Route: 048
     Dates: start: 20101230, end: 20110413
  3. DEXAMETHASONE [Suspect]
     Indication: MULTIPLE MYELOMA
     Route: 065
     Dates: start: 20101230, end: 20110413
  4. ZOMETA [Concomitant]
     Route: 041
  5. REVLIMID [Suspect]
     Route: 048
     Dates: start: 20110620
  6. DEXAMETHASONE [Suspect]
     Route: 065
     Dates: start: 20110620
  7. CYCLOPHOSPHAMIDE [Suspect]
     Indication: MULTIPLE MYELOMA
     Route: 065
     Dates: start: 20110620
  8. FENTANYL [Concomitant]
     Dosage: 150 MICROGRAM
     Route: 062

REACTIONS (1)
  - PSEUDOMONAL SEPSIS [None]
